FAERS Safety Report 4323972-2 (Version None)
Quarter: 2004Q1

REPORT INFORMATION
  Report Type: 
  Country: None (occurrence: None)
  Receive Date: 20040326
  Receipt Date: 20031202
  Transmission Date: 20041129
  Serious: No
  Sender: FDA-Public Use
  Company Number: US-GLAXOSMITHKLINE-A0441660A

PATIENT
  Age: 5 Year
  Sex: Female

DRUGS (3)
  1. ADVAIR DISKUS 100/50 [Suspect]
     Indication: ASTHMA
     Route: 055
  2. MULTI-VITAMIN [Concomitant]
  3. CLARITIN [Concomitant]

REACTIONS (2)
  - DISTURBANCE IN ATTENTION [None]
  - LOGORRHOEA [None]
